FAERS Safety Report 7854451-3 (Version None)
Quarter: 2011Q3

REPORT INFORMATION
  Report Type: 
  Country: None (occurrence: None)
  Receive Date: 20110916
  Receipt Date: 20110412
  Transmission Date: 20111222
  Serious: Yes (Hospitalization)
  Sender: FDA-Public Use
  Company Number: 2011SP016550

PATIENT
  Age: 20 Year
  Sex: Female
  Weight: 99.7913 kg

DRUGS (1)
  1. IMPLANON [Suspect]
     Indication: CONTRACEPTION
     Dates: start: 20100301

REACTIONS (4)
  - PREGNANCY WITH IMPLANT CONTRACEPTIVE [None]
  - ABDOMINAL PAIN [None]
  - MENORRHAGIA [None]
  - BACK PAIN [None]
